FAERS Safety Report 24139544 (Version 1)
Quarter: 2024Q3

REPORT INFORMATION
  Report Type: Spontaneous
  Country: GB (occurrence: GB)
  Receive Date: 20240726
  Receipt Date: 20240726
  Transmission Date: 20241017
  Serious: Yes (Other)
  Sender: TEVA
  Company Number: GB-MHRA-TPP57219446C22275880YC1721318236884

PATIENT
  Age: 29 Year
  Sex: Male
  Weight: 114 kg

DRUGS (9)
  1. NAPROXEN [Suspect]
     Active Substance: NAPROXEN
     Indication: Ill-defined disorder
     Dosage: DOSE FORM REPORTED: TPP YC - PLEASE RECLASSIFY, DURATION: 45 DAYS
     Route: 048
     Dates: start: 20240601, end: 20240715
  2. NAPROXEN [Concomitant]
     Active Substance: NAPROXEN
     Indication: Ill-defined disorder
     Dosage: ONE TO BE TAKEN TWICE A DAY WITH FOOD, DOSE FORM REPORTED: TPP YC - PLEASE RECLASSIFY, DURATION: ...
     Dates: start: 20231212, end: 20240715
  3. BISOPROLOL [Concomitant]
     Active Substance: BISOPROLOL\BISOPROLOL FUMARATE
     Indication: Ill-defined disorder
     Dosage: TAKE ONE DAILY IN THE MORNING, DOSE FORM REPORTED: TPP YC - PLEASE RECLASSIFY
     Dates: start: 20240708
  4. DOXAZOSIN [Concomitant]
     Active Substance: DOXAZOSIN MESYLATE
     Indication: Ill-defined disorder
     Dosage: TAKE THREE TABLETS TWICE A DAY, DOSE FORM REPORTED: TPP YC - PLEASE RECLASSIFY
     Dates: start: 20240709
  5. CODEINE PHOSPHATE [Concomitant]
     Active Substance: CODEINE PHOSPHATE
     Indication: Ill-defined disorder
     Dosage: 1 TABLET UP TO TWICE A DAY - NO MORE THAN 2 A D..., DOSE FORM REPORTED: TPP YC - PLEASE RECLASSIFY
     Dates: start: 20240718
  6. AMLODIPINE [Concomitant]
     Active Substance: AMLODIPINE BESYLATE
     Indication: Ill-defined disorder
     Dosage: TAKE ONE DAILY IN THE MORNING, DOSE FORM REPORTED: TPP YC - PLEASE RECLASSIFY
     Dates: start: 20240708
  7. OMEPRAZOLE [Concomitant]
     Active Substance: OMEPRAZOLE
     Indication: Ill-defined disorder
     Dosage: ONE TO BE TAKEN TWICE A DAY, DOSE FORM REPORTED: TPP YC - PLEASE RECLASSIFY, DURATION: 217 DAYS
     Dates: start: 20231212, end: 20240715
  8. AMITRIPTYLINE HYDROCHLORIDE [Concomitant]
     Active Substance: AMITRIPTYLINE HYDROCHLORIDE
     Indication: Ill-defined disorder
     Dosage: KE ONE TABLET AT NIGHT FOR NEUROPATHIC PAIN, DOSE FORM REPORTED: TPP YC - PLEASE RECLASSIFY
     Dates: start: 20231212
  9. COCODAMOL [Concomitant]
     Active Substance: ACETAMINOPHEN\CODEINE PHOSPHATE
     Indication: Ill-defined disorder
     Dosage: 1-2 TABLETS UP TO FOUR TIMES FOR SCIATICA PAIN, DOSE FORM REPORTED: TPP YC - PLEASE RECLASSIFY, D...
     Dates: start: 20240520, end: 20240718

REACTIONS (1)
  - Acute kidney injury [Not Recovered/Not Resolved]

NARRATIVE: CASE EVENT DATE: 20240601
